FAERS Safety Report 14295616 (Version 1)
Quarter: 2017Q4

REPORT INFORMATION
  Report Type: Spontaneous
  Country: US (occurrence: US)
  Receive Date: 20171215
  Receipt Date: 20171215
  Transmission Date: 20180321
  Serious: Yes (Hospitalization)
  Sender: FDA-Public Use
  Company Number: None

PATIENT
  Age: 59 Year
  Sex: Male

DRUGS (1)
  1. LEVOFLOXACIN. [Suspect]
     Active Substance: LEVOFLOXACIN
     Indication: SEPSIS
     Route: 048
     Dates: start: 20171121, end: 20171129

REACTIONS (12)
  - Pallor [None]
  - Urticaria [None]
  - Malaise [None]
  - Post procedural complication [None]
  - Sinus bradycardia [None]
  - Drug eruption [None]
  - White blood cell count increased [None]
  - Rash pruritic [None]
  - Blood creatinine increased [None]
  - Asthenia [None]
  - Rash [None]
  - Viral infection [None]

NARRATIVE: CASE EVENT DATE: 20171129
